FAERS Safety Report 23641245 (Version 2)
Quarter: 2024Q2

REPORT INFORMATION
  Report Type: Spontaneous
  Country: US (occurrence: US)
  Receive Date: 20240318
  Receipt Date: 20240402
  Transmission Date: 20240716
  Serious: No
  Sender: FDA-Public Use
  Company Number: US-BRISTOL-MYERS SQUIBB COMPANY-2024-042859

PATIENT
  Age: 62 Year
  Sex: Male
  Weight: 110.77 kg

DRUGS (3)
  1. YERVOY [Suspect]
     Active Substance: IPILIMUMAB
     Indication: Renal cancer
     Route: 042
     Dates: start: 20240109, end: 20240202
  2. NIVOLUMAB [Suspect]
     Active Substance: NIVOLUMAB
     Indication: Renal cancer
     Route: 042
     Dates: start: 20240109, end: 20240202
  3. ABRAXANE [Concomitant]
     Active Substance: PACLITAXEL
     Indication: Product used for unknown indication

REACTIONS (3)
  - Dyspnoea [Recovered/Resolved]
  - Off label use [Unknown]
  - Drug hypersensitivity [Unknown]

NARRATIVE: CASE EVENT DATE: 20240202
